FAERS Safety Report 6755937-5 (Version None)
Quarter: 2010Q2

REPORT INFORMATION
  Report Type: 
  Country: None (occurrence: None)
  Receive Date: 20100604
  Receipt Date: 20100601
  Transmission Date: 20101027
  Serious: Yes (Hospitalization, Other)
  Sender: FDA-Public Use
  Company Number: AU-ROXANE LABORATORIES, INC.-2010-RO-00657RO

PATIENT
  Age: 63 Year
  Sex: Female

DRUGS (5)
  1. LITHIUM CARBONATE CAP [Suspect]
     Dates: start: 19980101, end: 20060101
  2. AMLODIPINE [Suspect]
  3. VENLAFAXINE [Suspect]
  4. CARBAMAZEPINE [Suspect]
  5. TRIFLUOPERAZINE [Suspect]

REACTIONS (2)
  - ABNORMAL BEHAVIOUR [None]
  - NEPHROGENIC DIABETES INSIPIDUS [None]
